FAERS Safety Report 23731749 (Version 1)
Quarter: 2024Q2

REPORT INFORMATION
  Report Type: Spontaneous
  Country: US (occurrence: None)
  Receive Date: 20240410
  Receipt Date: 20240410
  Transmission Date: 20240716
  Serious: No
  Sender: FDA-Public Use
  Company Number: None

PATIENT
  Age: 50 Year
  Sex: Female
  Weight: 54.45 kg

DRUGS (1)
  1. HIZENTRA [Suspect]
     Active Substance: HUMAN IMMUNOGLOBULIN G
     Indication: Sjogren^s syndrome
     Dosage: FREQUENCY : WEEKLY;?
     Route: 058
     Dates: start: 20200529

REACTIONS (9)
  - Skin reaction [None]
  - Recalled product administered [None]
  - Gastrointestinal disorder [None]
  - Nausea [None]
  - Hypersensitivity [None]
  - Product quality issue [None]
  - Infusion site pruritus [None]
  - Infusion site induration [None]
  - Dyspnoea [None]

NARRATIVE: CASE EVENT DATE: 20240321
